FAERS Safety Report 4978954-4 (Version None)
Quarter: 2006Q2

REPORT INFORMATION
  Report Type: 
  Country: None (occurrence: None)
  Receive Date: 20060417
  Receipt Date: 20060406
  Transmission Date: 20061013
  Serious: Yes (Hospitalization)
  Sender: FDA-Public Use
  Company Number: 2006048639

PATIENT
  Age: 74 Year
  Sex: Male

DRUGS (11)
  1. ATENOLOL [Suspect]
     Indication: ILL-DEFINED DISORDER
     Dosage: 25 MG (QD), ORAL
     Route: 048
  2. FLAGYL [Suspect]
     Indication: ILL-DEFINED DISORDER
     Dosage: 1500 MG (500 MG, 1 IN 1 D), ORAL
     Route: 048
  3. SANDOGLOBULIN [Suspect]
     Indication: COLITIS PSEUDOMEMBRANOUS
     Dosage: SEE IMAGE
     Route: 042
     Dates: start: 20060307, end: 20060307
  4. SANDOGLOBULIN [Suspect]
     Indication: COLITIS PSEUDOMEMBRANOUS
     Dosage: SEE IMAGE
     Route: 042
     Dates: start: 20060307, end: 20060307
  5. TARGOCID [Suspect]
     Indication: ILL-DEFINED DISORDER
     Dosage: 200 MG (100 MG, 1 IN 1 D), ORAL
     Route: 048
  6. ASPEGIC 1000 [Suspect]
     Indication: ILL-DEFINED DISORDER
     Dosage: ORAL
     Route: 048
  7. OMEPRAZOLE [Suspect]
     Indication: ILL-DEFINED DISORDER
     Dosage: 40 MG, (40 MG, 1 IN 1 D), INTRAVENOUS
     Route: 042
  8. CALCIPARINE [Concomitant]
  9. ARANESP [Concomitant]
  10. INSULIN [Concomitant]
  11. SMECTA (SMECTITE) [Concomitant]

REACTIONS (3)
  - DYSPNOEA [None]
  - ERYTHEMA [None]
  - POST PROCEDURAL COMPLICATION [None]
